FAERS Safety Report 5128931-8 (Version None)
Quarter: 2006Q4

REPORT INFORMATION
  Report Type: 
  Country: None (occurrence: None)
  Receive Date: 20061017
  Receipt Date: 20061011
  Transmission Date: 20070319
  Serious: Yes (Death, Other)
  Sender: FDA-Public Use
  Company Number: US-BRISTOL-MYERS SQUIBB COMPANY-13537535

PATIENT
  Age: 35 Year
  Sex: Female

DRUGS (2)
  1. ORENCIA [Suspect]
     Indication: RHEUMATOID ARTHRITIS
     Route: 042
  2. LEVAQUIN [Suspect]
     Indication: PNEUMONIA

REACTIONS (2)
  - ANAPHYLACTIC REACTION [None]
  - PNEUMONIA [None]
